FAERS Safety Report 5505405-3 (Version None)
Quarter: 2007Q4

REPORT INFORMATION
  Report Type: 
  Country: None (occurrence: None)
  Receive Date: 20071102
  Receipt Date: 20071023
  Transmission Date: 20080405
  Serious: Yes (Other)
  Sender: FDA-Public Use
  Company Number: JP-MERCK-0710USA05390

PATIENT
  Age: 73 Year
  Sex: Female

DRUGS (1)
  1. PRIMAXIN [Suspect]
     Route: 042

REACTIONS (1)
  - BONE MARROW FAILURE [None]
